FAERS Safety Report 21580441 (Version 1)
Quarter: 2022Q4

REPORT INFORMATION
  Report Type: Report from Study
  Country: ES (occurrence: ES)
  Receive Date: 20221110
  Receipt Date: 20221110
  Transmission Date: 20230113
  Serious: Yes (Death, Other)
  Sender: FDA-Public Use
  Company Number: ES-JNJFOC-20221114362

PATIENT

DRUGS (1)
  1. IMBRUVICA [Suspect]
     Active Substance: IBRUTINIB
     Indication: Chronic lymphocytic leukaemia
     Route: 048

REACTIONS (16)
  - Death [Fatal]
  - Pneumonitis [Fatal]
  - Haematoma [Unknown]
  - Toxicity to various agents [Unknown]
  - Rectal haemorrhage [Fatal]
  - Atrial fibrillation [Fatal]
  - Adverse event [Unknown]
  - Uveitis [Fatal]
  - Anaemia [Unknown]
  - Haemorrhage [Fatal]
  - Cardiovascular disorder [Fatal]
  - Asthenia [Unknown]
  - Arthralgia [Unknown]
  - Neutropenia [Fatal]
  - Drug intolerance [Unknown]
  - Chronic lymphocytic leukaemia [Fatal]
